FAERS Safety Report 7251528-0 (Version None)
Quarter: 2011Q1

REPORT INFORMATION
  Report Type: 
  Country: None (occurrence: None)
  Receive Date: 20110128
  Receipt Date: 20110117
  Transmission Date: 20110831
  Serious: Yes (Hospitalization, Other)
  Sender: FDA-Public Use
  Company Number: BR-ELI_LILLY_AND_COMPANY-BR201101004210

PATIENT
  Sex: Female
  Weight: 70 kg

DRUGS (1)
  1. FORTEO [Suspect]
     Indication: BONE PAIN
     Dosage: UNK, UNKNOWN
     Route: 065
     Dates: start: 20091201

REACTIONS (4)
  - INTENTIONAL DRUG MISUSE [None]
  - FEMUR FRACTURE [None]
  - FEELING ABNORMAL [None]
  - FALL [None]
